FAERS Safety Report 6801949-2 (Version None)
Quarter: 2010Q2

REPORT INFORMATION
  Report Type: 
  Country: None (occurrence: None)
  Receive Date: 20100629
  Receipt Date: 20100621
  Transmission Date: 20101027
  Serious: Yes (Other)
  Sender: FDA-Public Use
  Company Number: CA-PFIZER INC-2010064078

PATIENT
  Age: 40 Year
  Sex: Female
  Weight: 64 kg

DRUGS (7)
  1. SERTRALINE HCL [Suspect]
     Dosage: UNK
  2. INFLIXIMAB [Suspect]
     Indication: PSORIASIS
     Dosage: 5MG/KG(5 INFUSIONS: AT DAY 0 AND AT WEEKS 2,6,14, AND 22) (NR, AT DAY 0 AND AT WEEKS 2,6,14, AND 22)
  3. INFLIXIMAB [Suspect]
     Indication: PSORIATIC ARTHROPATHY
  4. METHOTREXATE [Suspect]
     Indication: PSORIASIS
     Dosage: UNK
     Dates: start: 20010401, end: 20030101
  5. METHOTREXATE [Suspect]
     Indication: PSORIATIC ARTHROPATHY
  6. ACETAMINOPHEN [Concomitant]
  7. IBUPROFEN [Concomitant]

REACTIONS (6)
  - ARTHRALGIA [None]
  - BUTTERFLY RASH [None]
  - HEPATIC FIBROSIS [None]
  - HEPATITIS [None]
  - JOINT SWELLING [None]
  - LUPUS-LIKE SYNDROME [None]
